FAERS Safety Report 23790569 (Version 1)
Quarter: 2024Q2

REPORT INFORMATION
  Report Type: Spontaneous
  Country: US (occurrence: US)
  Receive Date: 20240427
  Receipt Date: 20240427
  Transmission Date: 20240716
  Serious: No
  Sender: FDA-Public Use
  Company Number: US-AMGEN-USASP2024082178

PATIENT
  Age: 41 Year
  Sex: Male

DRUGS (5)
  1. APREMILAST [Suspect]
     Active Substance: APREMILAST
     Indication: Pruritus
     Dosage: 30 MILLIGRAM, BID
     Route: 048
  2. APREMILAST [Suspect]
     Active Substance: APREMILAST
     Indication: Off label use
  3. GABAPENTIN [Concomitant]
     Active Substance: GABAPENTIN
     Dosage: 300 MILLIGRAM, TID
  4. PREGABALIN [Concomitant]
     Active Substance: PREGABALIN
     Dosage: 75 MILLIGRAM, BID
  5. NALTREXONE [Concomitant]
     Active Substance: NALTREXONE
     Dosage: 50 MILLIGRAM, QD

REACTIONS (3)
  - Diarrhoea [Unknown]
  - Headache [Unknown]
  - Off label use [Unknown]
